FAERS Safety Report 15442960 (Version 4)
Quarter: 2020Q3

REPORT INFORMATION
  Report Type: Report from Study
  Country: PL (occurrence: PL)
  Receive Date: 20180928
  Receipt Date: 20181119
  Transmission Date: 20201105
  Serious: Yes (Hospitalization)
  Sender: FDA-Public Use
  Company Number: PL-JNJFOC-20180925265

PATIENT
  Age: 23 Year
  Sex: Female
  Weight: 51 kg

DRUGS (9)
  1. METYPRED [Concomitant]
     Active Substance: METHYLPREDNISOLONE
     Route: 048
     Dates: start: 20180821
  2. USTEKINUMAB [Suspect]
     Active Substance: USTEKINUMAB
     Route: 058
  3. PENTASA [Concomitant]
     Active Substance: MESALAMINE
     Route: 048
     Dates: start: 20180514
  4. NARAYA [Concomitant]
     Indication: CONTRACEPTION
     Route: 048
     Dates: start: 20170701
  5. NO?SPA [Concomitant]
     Active Substance: DROTAVERINE HYDROCHLORIDE
     Indication: COLITIS ULCERATIVE
     Route: 048
     Dates: start: 20180813
  6. IMURAN [Concomitant]
     Active Substance: AZATHIOPRINE
     Route: 048
     Dates: start: 20180405
  7. USTEKINUMAB [Suspect]
     Active Substance: USTEKINUMAB
     Indication: COLITIS ULCERATIVE
     Dosage: PFS
     Route: 058
     Dates: start: 20160511
  8. METYPRED [Concomitant]
     Active Substance: METHYLPREDNISOLONE
     Route: 048
     Dates: start: 20180816, end: 20180820
  9. SMECTA [Concomitant]
     Active Substance: MONTMORILLONITE
     Indication: COLITIS ULCERATIVE
     Route: 048
     Dates: start: 20180813

REACTIONS (1)
  - Colitis ulcerative [Recovering/Resolving]

NARRATIVE: CASE EVENT DATE: 20180918
